FAERS Safety Report 8744327 (Version 2)
Quarter: 2012Q4

REPORT INFORMATION
  Report Type: 
  Country: US (occurrence: US)
  Receive Date: 20120825
  Receipt Date: 20121112
  Transmission Date: 20130627
  Serious: No
  Sender: FDA-Public Use
  Company Number: US-009507513-1208USA001220

PATIENT
  Age: 68 Year
  Sex: Male
  Weight: 77.98 kg

DRUGS (6)
  1. DULERA [Suspect]
     Indication: ASTHMA
     Dosage: 2 DF, bid
     Route: 045
  2. SINGULAIR [Concomitant]
     Dosage: 10 mg, UNK
     Route: 048
     Dates: start: 20120313
  3. APRISO [Concomitant]
     Dosage: 4 DF, 1500 mg
     Route: 048
     Dates: start: 20120313
  4. LEVAQUIN [Concomitant]
     Dosage: 500 mg, qd
     Route: 048
     Dates: start: 20120924
  5. MICARDIS [Concomitant]
     Dosage: 1 DF, qd
     Route: 048
     Dates: start: 20120313
  6. XOPENEX [Concomitant]
     Dosage: 90 Microgram, q4h
     Dates: start: 20120313

REACTIONS (1)
  - Alopecia areata [Not Recovered/Not Resolved]
